FAERS Safety Report 8760666 (Version 1)
Quarter: 2012Q4

REPORT INFORMATION
  Report Type: 
  Country: FR (occurrence: FR)
  Receive Date: 20120830
  Receipt Date: 20120830
  Transmission Date: 20130627
  Serious: Yes (Congenital Anomaly)
  Sender: FDA-Public Use
  Company Number: FR-UCBSA-064401

PATIENT

DRUGS (3)
  1. KEPPRA [Suspect]
     Dosage: DAILY DOSE: 250 MG
     Route: 064
     Dates: start: 20110711, end: 20120406
  2. DEPAKINE [Suspect]
     Route: 064
     Dates: start: 20110711, end: 201202
  3. LAMICTAL [Suspect]
     Route: 064
     Dates: start: 20110711, end: 20120406

REACTIONS (3)
  - Multiple congenital abnormalities [Not Recovered/Not Resolved]
  - Congenital renal cyst [Recovered/Resolved with Sequelae]
  - Foetal exposure during pregnancy [Recovered/Resolved]
